FAERS Safety Report 8452444-9 (Version None)
Quarter: 2012Q2

REPORT INFORMATION
  Report Type: 
  Country: None (occurrence: None)
  Receive Date: 20120620
  Receipt Date: 20120414
  Transmission Date: 20120825
  Serious: No
  Sender: FDA-Public Use
  Company Number: US-VERTEX PHARMACEUTICALS INC.-AE-2012-005220

PATIENT
  Sex: Female
  Weight: 59.02 kg

DRUGS (5)
  1. HYDROXYZINE PAMOATE [Concomitant]
     Indication: ANXIETY
     Route: 048
  2. PEGASYS [Concomitant]
     Indication: HEPATITIS C
     Route: 058
     Dates: start: 20120409
  3. LAMOTRIGINE [Concomitant]
     Indication: DEPRESSION
     Route: 048
  4. RIBASPHERE [Concomitant]
     Indication: HEPATITIS C
     Dates: start: 20120409
  5. INCIVEK [Suspect]
     Indication: HEPATITIS C
     Route: 048
     Dates: start: 20120409

REACTIONS (7)
  - DECREASED APPETITE [None]
  - NAUSEA [None]
  - ANAL PRURITUS [None]
  - ANORECTAL DISCOMFORT [None]
  - CONSTIPATION [None]
  - RASH GENERALISED [None]
  - VOMITING [None]
